FAERS Safety Report 5245336-X (Version None)
Quarter: 2007Q1

REPORT INFORMATION
  Report Type: 
  Country: None (occurrence: None)
  Receive Date: 20070223
  Receipt Date: 20070215
  Transmission Date: 20070707
  Serious: Yes (Death, Other)
  Sender: FDA-Public Use
  Company Number: BE-AVENTIS-200622050GDDC

PATIENT
  Age: 60 Year
  Sex: Female
  Weight: 91.9 kg

DRUGS (5)
  1. TAXOTERE [Suspect]
     Indication: BREAST CANCER
     Route: 042
     Dates: start: 20061024, end: 20061024
  2. 5 FLUOUROCIL [Concomitant]
     Indication: BREAST CANCER
     Route: 042
     Dates: start: 20060707, end: 20060822
  3. EPIRUBICIN [Concomitant]
     Indication: BREAST CANCER
     Route: 042
     Dates: start: 20060707, end: 20060822
  4. CYCLOPHOSPHAMIDE [Concomitant]
     Route: 042
     Dates: start: 20060707, end: 20060822
  5. SURBRONC [Concomitant]
     Dosage: DOSE: UNK
     Route: 048

REACTIONS (5)
  - DYSPNOEA [None]
  - ENDOCARDITIS [None]
  - INTERSTITIAL LUNG DISEASE [None]
  - PNEUMOTHORAX [None]
  - PYREXIA [None]
